FAERS Safety Report 19674744 (Version 1)
Quarter: 2021Q3

REPORT INFORMATION
  Report Type: Spontaneous
  Country: US (occurrence: US)
  Receive Date: 20210809
  Receipt Date: 20210809
  Transmission Date: 20211014
  Serious: No
  Sender: FDA-Public Use
  Company Number: US-BAYER-2021-186783

PATIENT
  Age: 34 Year
  Sex: Female

DRUGS (1)
  1. MIRENA [Suspect]
     Active Substance: LEVONORGESTREL
     Indication: CONTRACEPTION
     Dosage: 20  ?G PER DAY ,CONTINUOUSLY
     Route: 015
     Dates: start: 20210712, end: 20210712

REACTIONS (5)
  - Device use issue [None]
  - Contraindicated device used [None]
  - Device placement issue [None]
  - Complication of device insertion [None]
  - Medical device monitoring error [None]

NARRATIVE: CASE EVENT DATE: 20210712
